FAERS Safety Report 9541804 (Version 1)
Quarter: 2013Q2

REPORT INFORMATION
  Report Type: Spontaneous
  Country: US (occurrence: None)
  Receive Date: 20130524
  Receipt Date: 20130524
  Transmission Date: 20140414
  Serious: Yes (Other)
  Sender: FDA-Public Use
  Company Number: PHEH2013US002465

PATIENT
  Age: 33 Year
  Sex: Female

DRUGS (1)
  1. GILENYA [Suspect]
     Indication: MULTIPLE SCLEROSIS
     Route: 048
     Dates: start: 20130121

REACTIONS (6)
  - Insomnia [None]
  - Chest discomfort [None]
  - Burning sensation [None]
  - Fatigue [None]
  - Heart rate decreased [None]
  - Back pain [None]
